FAERS Safety Report 18904500 (Version 1)
Quarter: 2021Q1

REPORT INFORMATION
  Report Type: Spontaneous
  Country: CA (occurrence: CA)
  Receive Date: 20210217
  Receipt Date: 20210217
  Transmission Date: 20210420
  Serious: Yes (Other)
  Sender: FDA-Public Use
  Company Number: CA-B.I. PHARMACEUTICALS,INC./RIDGEFIELD-2021-BI-082892

PATIENT
  Sex: Female

DRUGS (10)
  1. ALVESCO [Suspect]
     Active Substance: CICLESONIDE
     Indication: PRODUCT USED FOR UNKNOWN INDICATION
     Dosage: DOSAGE FORM: AEROSOL, METEREDDOSE
  2. SINGULAIR [Suspect]
     Active Substance: MONTELUKAST SODIUM
     Indication: PRODUCT USED FOR UNKNOWN INDICATION
  3. COMBIVENT [Suspect]
     Active Substance: ALBUTEROL SULFATE\IPRATROPIUM BROMIDE
     Indication: PRODUCT USED FOR UNKNOWN INDICATION
  4. PREDNISONE. [Suspect]
     Active Substance: PREDNISONE
  5. FLUTICASONE PROPIONATE;SALMETEROL XINAFOATE [Suspect]
     Active Substance: FLUTICASONE PROPIONATE\SALMETEROL XINAFOATE
     Indication: ASTHMA
  6. PREDNISONE. [Suspect]
     Active Substance: PREDNISONE
  7. PREDNISONE. [Suspect]
     Active Substance: PREDNISONE
  8. PREDNISONE. [Suspect]
     Active Substance: PREDNISONE
  9. SEPTRA [Suspect]
     Active Substance: SULFAMETHOXAZOLE\TRIMETHOPRIM
     Indication: PRODUCT USED FOR UNKNOWN INDICATION
  10. PREDNISONE. [Suspect]
     Active Substance: PREDNISONE
     Indication: PRODUCT USED FOR UNKNOWN INDICATION

REACTIONS (28)
  - Chronic obstructive pulmonary disease [Unknown]
  - Clostridium difficile infection [Unknown]
  - Oxygen saturation decreased [Unknown]
  - Pyrexia [Unknown]
  - Drug hypersensitivity [Unknown]
  - Hypertension [Unknown]
  - Pneumonitis [Unknown]
  - Asthma [Unknown]
  - Colitis [Unknown]
  - Increased upper airway secretion [Unknown]
  - Dyspnoea [Unknown]
  - Fracture [Unknown]
  - Respiratory disorder [Unknown]
  - Rhinitis [Unknown]
  - Rhinorrhoea [Unknown]
  - Autoimmune disorder [Unknown]
  - Mucosal inflammation [Unknown]
  - Adrenal insufficiency [Unknown]
  - Gastrooesophageal reflux disease [Unknown]
  - Hypothyroidism [Unknown]
  - Mycobacterium test positive [Unknown]
  - Hypoparathyroidism [Unknown]
  - Osteoporosis [Unknown]
  - Sleep apnoea syndrome [Unknown]
  - Arthritis [Unknown]
  - Cough [Unknown]
  - Rash [Unknown]
  - Recurrent cancer [Unknown]
